FAERS Safety Report 15113436 (Version 2)
Quarter: 2018Q3

REPORT INFORMATION
  Report Type: Report from Study
  Country: IT (occurrence: IT)
  Receive Date: 20180706
  Receipt Date: 20180817
  Transmission Date: 20181010
  Serious: Yes (Hospitalization)
  Sender: FDA-Public Use
  Company Number: IT-TEVA-2018-IT-921479

PATIENT
  Age: 54 Year
  Sex: Female

DRUGS (7)
  1. FLUOXETINE [Suspect]
     Active Substance: FLUOXETINE HYDROCHLORIDE
     Indication: INTENTIONAL PRODUCT MISUSE
     Route: 065
     Dates: start: 20180310, end: 20180310
  2. PROZAC 20 MG CAPSULE RIGIDE [Concomitant]
  3. LYRICA [Concomitant]
     Active Substance: PREGABALIN
  4. EUTIROX 50 MICROGRAMMI COMPRESSE [Concomitant]
  5. VERAPAMIL [Suspect]
     Active Substance: VERAPAMIL HYDROCHLORIDE
     Indication: INTENTIONAL PRODUCT MISUSE
     Route: 065
     Dates: start: 20180310, end: 20180310
  6. DELORAZEPAM [Suspect]
     Active Substance: DELORAZEPAM
     Indication: INTENTIONAL PRODUCT MISUSE
     Route: 065
     Dates: start: 20180310, end: 20180310
  7. NOZINAN 25 MG COMPRESSE RIVESTITE CON FILM [Suspect]
     Active Substance: LEVOMEPROMAZINE
     Indication: INTENTIONAL PRODUCT MISUSE
     Dates: start: 20180310, end: 20180310

REACTIONS (4)
  - Fracture [Recovering/Resolving]
  - Drug abuse [Recovering/Resolving]
  - Migraine [Recovering/Resolving]
  - Headache [Recovering/Resolving]

NARRATIVE: CASE EVENT DATE: 20180311
